FAERS Safety Report 17104776 (Version 1)
Quarter: 2019Q4

REPORT INFORMATION
  Report Type: Spontaneous
  Country: US (occurrence: US)
  Receive Date: 20191203
  Receipt Date: 20191203
  Transmission Date: 20200122
  Serious: No
  Sender: FDA-Public Use
  Company Number: US-SUN PHARMACEUTICAL INDUSTRIES LTD-2019R1-207328

PATIENT
  Sex: Male

DRUGS (8)
  1. DPCP [Concomitant]
     Indication: ALOPECIA UNIVERSALIS
     Dosage: UNK
     Route: 065
  2. MINOXIDIL. [Concomitant]
     Active Substance: MINOXIDIL
     Indication: ALOPECIA UNIVERSALIS
     Dosage: UNK
     Route: 065
  3. LIDEX [Concomitant]
     Active Substance: FLUOCINONIDE
     Indication: ALOPECIA UNIVERSALIS
     Dosage: UNK
     Route: 065
  4. ANTHRALINE [Concomitant]
     Indication: ALOPECIA UNIVERSALIS
     Dosage: UNK
     Route: 065
  5. DEXAMETHASONE. [Concomitant]
     Active Substance: DEXAMETHASONE
     Indication: ALOPECIA UNIVERSALIS
     Dosage: UNK (5 MG EVERY WEEKEND)
     Route: 065
     Dates: start: 20150731
  6. CYCLOSPORIN [Concomitant]
     Active Substance: CYCLOSPORINE
     Indication: ALOPECIA UNIVERSALIS
     Dosage: 300 MILLIGRAM, DAILY
     Route: 065
     Dates: start: 20150831, end: 20160315
  7. CYCLOSPORIN [Concomitant]
     Active Substance: CYCLOSPORINE
     Dosage: 200 MILLIGRAM, DAILY
     Route: 065
  8. KENALOG [Suspect]
     Active Substance: TRIAMCINOLONE ACETONIDE
     Indication: ALOPECIA UNIVERSALIS
     Dosage: UNK
     Route: 026
     Dates: start: 2015

REACTIONS (1)
  - Drug ineffective [Unknown]
